FAERS Safety Report 6772232-9 (Version None)
Quarter: 2010Q2

REPORT INFORMATION
  Report Type: 
  Country: None (occurrence: None)
  Receive Date: 20100614
  Receipt Date: 20100601
  Transmission Date: 20101027
  Serious: No
  Sender: FDA-Public Use
  Company Number: 012928

PATIENT
  Sex: Male
  Weight: 57.1 kg

DRUGS (3)
  1. KEPPRA [Suspect]
     Indication: CONVULSION
     Dosage: 750 MG BID ORAL
     Route: 048
     Dates: start: 20090101
  2. SINGULAIR [Concomitant]
  3. VITAMIN B6 [Concomitant]

REACTIONS (3)
  - EMOTIONAL DISORDER [None]
  - IRRITABILITY [None]
  - NECK PAIN [None]
